FAERS Safety Report 7832192-6 (Version None)
Quarter: 2011Q4

REPORT INFORMATION
  Report Type: 
  Country: None (occurrence: None)
  Receive Date: 20111022
  Receipt Date: 20111007
  Transmission Date: 20120403
  Serious: Yes (Hospitalization)
  Sender: FDA-Public Use
  Company Number: US-BAYER-2011-003036

PATIENT
  Age: 26 Year
  Sex: Female

DRUGS (13)
  1. NASONEX [Concomitant]
     Dosage: 50 MCG/24HR, ACT SUSP, 1-2 PUFFS,
     Route: 045
     Dates: start: 20071130
  2. GABAPENTIN [Concomitant]
     Dosage: 300 MG / 2 QD
     Dates: start: 20071217
  3. COMBIVENT [Concomitant]
     Dosage: UNK
     Route: 045
     Dates: start: 20071221
  4. YASMIN [Suspect]
     Indication: ACNE
  5. YASMIN [Suspect]
     Indication: PREMENSTRUAL SYNDROME
  6. ZOLOFT [Concomitant]
     Dosage: 100 MG, QD
     Dates: start: 20071130
  7. NAPROSYN [Concomitant]
  8. YASMIN [Suspect]
     Indication: CONTRACEPTION
     Dosage: UNK
     Dates: start: 20070801, end: 20071201
  9. ADVAIR DISKUS 100/50 [Concomitant]
     Dosage: 100-50 MCG, 1 PUFF, BID
     Route: 045
     Dates: start: 20071130
  10. ALBUTEROL SULFATE [Concomitant]
     Dosage: 180 MCG/ 2 PUFFS Q 4-6 HOURS
     Route: 045
     Dates: start: 20071130
  11. SULFAMETHOXAZOLE AND TRIMETHOPRIM DOUBLE STRENGTH [Concomitant]
     Dosage: 800-160 MG TABS/ 1 TAB BID
     Dates: start: 20071130
  12. ZYRTEC [Concomitant]
     Dosage: 10 MG, QD, TABS
     Dates: start: 20071130
  13. SEROQUEL [Concomitant]
     Dosage: 50 MG TAB/ QHS
     Dates: start: 20071130

REACTIONS (12)
  - CHEST PAIN [None]
  - PULMONARY INFARCTION [None]
  - RASH [None]
  - FIBRIN D DIMER INCREASED [None]
  - BILIARY COLIC [None]
  - PULMONARY EMBOLISM [None]
  - CHOLECYSTITIS [None]
  - ABDOMINAL PAIN UPPER [None]
  - NAUSEA [None]
  - DYSPNOEA [None]
  - PLEURAL EFFUSION [None]
  - CHOLELITHIASIS [None]
